FAERS Safety Report 4623921-3 (Version None)
Quarter: 2005Q1

REPORT INFORMATION
  Report Type: 
  Country: None (occurrence: None)
  Receive Date: 20050331
  Receipt Date: 20050320
  Transmission Date: 20050727
  Serious: Yes (Death, Life-Threatening, Hospitalization, Disabling)
  Sender: FDA-Public Use
  Company Number: US-MERCK-0503USA03366

PATIENT
  Sex: Male

DRUGS (1)
  1. VIOXX [Suspect]
     Indication: ARTHRALGIA
     Route: 048
     Dates: start: 20020101, end: 20040101

REACTIONS (11)
  - BACK PAIN [None]
  - CEREBROVASCULAR ACCIDENT [None]
  - DEATH [None]
  - DIZZINESS [None]
  - DYSPEPSIA [None]
  - FATIGUE [None]
  - HEADACHE [None]
  - PAIN [None]
  - RESPIRATORY DISORDER [None]
  - URINARY TRACT INFECTION [None]
  - VOLVULUS OF BOWEL [None]
